FAERS Safety Report 14642446 (Version 5)
Quarter: 2024Q3

REPORT INFORMATION
  Report Type: Report from Study
  Country: ES (occurrence: ES)
  Receive Date: 20180315
  Receipt Date: 20240716
  Transmission Date: 20241016
  Serious: Yes (Hospitalization)
  Sender: SANOFI AVENTIS
  Company Number: ES-NOVOPROD-530563

PATIENT
  Age: 32 Year
  Sex: Female
  Weight: 57 kg

DRUGS (27)
  1. INSULIN GLARGINE [Suspect]
     Active Substance: INSULIN GLARGINE
     Indication: Type 1 diabetes mellitus
     Dosage: 18 IU, QD
     Route: 058
     Dates: start: 20050512, end: 20170202
  2. INSULIN GLARGINE [Suspect]
     Active Substance: INSULIN GLARGINE
     Dosage: 19 IU, QD
     Route: 058
     Dates: start: 20170201, end: 20170202
  3. INSULIN GLARGINE [Suspect]
     Active Substance: INSULIN GLARGINE
     Dosage: 14 IU, QD
     Route: 058
     Dates: start: 20170904
  4. INSULIN ASPART [Suspect]
     Active Substance: INSULIN ASPART
     Indication: Type 1 diabetes mellitus
     Dosage: 38 IU,QD
     Route: 058
     Dates: start: 20041112, end: 20170202
  5. INSULIN ASPART [Suspect]
     Active Substance: INSULIN ASPART
     Dosage: 38 IU,QD
     Route: 058
     Dates: start: 20170202
  6. INSULIN ASPART [Suspect]
     Active Substance: INSULIN ASPART
     Dosage: 23 IU,QD
     Route: 058
     Dates: start: 20170202
  7. INSULIN ASPART [Suspect]
     Active Substance: INSULIN ASPART
     Dosage: 40 IU,QD
     Route: 058
  8. INSULIN ASPART [Suspect]
     Active Substance: INSULIN ASPART
     Dosage: 38 IU,QD
     Route: 058
     Dates: start: 20170121
  9. INSULIN ASPART [Suspect]
     Active Substance: INSULIN ASPART
     Dosage: 23 IU,QD
     Route: 058
     Dates: start: 20170131, end: 20170202
  10. INSULIN ASPART [Suspect]
     Active Substance: INSULIN ASPART
     Dosage: 39.9 IU,QD
     Route: 058
     Dates: start: 20170202
  11. INSULIN ASPART [Suspect]
     Active Substance: INSULIN ASPART
     Dosage: 38 UNK
     Route: 058
     Dates: start: 20170201
  12. INSULIN ASPART [Suspect]
     Active Substance: INSULIN ASPART
     Dosage: 23 UNK
     Route: 058
     Dates: start: 20041112
  13. APIDRA [Suspect]
     Active Substance: INSULIN GLULISINE
     Indication: Type 1 diabetes mellitus
     Dosage: 21 IU, QD
     Route: 058
     Dates: start: 20171002
  14. TRESIBA [Suspect]
     Active Substance: INSULIN DEGLUDEC
     Indication: Type 1 diabetes mellitus
     Dosage: 12 IU, QD
     Route: 065
     Dates: start: 20171016
  15. AMOXICILLIN [Concomitant]
     Active Substance: AMOXICILLIN
     Indication: Nasopharyngitis
     Dosage: UNK UNK,UNK
     Route: 065
     Dates: start: 20170110, end: 20170121
  16. CLOTRIMAZOLE [Concomitant]
     Active Substance: CLOTRIMAZOLE
     Indication: Vulvovaginitis
     Dosage: UNK UNK,UNK
     Route: 065
     Dates: start: 20170321, end: 20170331
  17. CLOTRIMAZOLE [Concomitant]
     Active Substance: CLOTRIMAZOLE
     Dosage: UNK UNK,UNK
     Route: 065
     Dates: start: 20170711, end: 20170717
  18. FOLIC ACID [Concomitant]
     Active Substance: FOLIC ACID
     Indication: Prophylaxis
     Dosage: UNK UNK,UNK
     Route: 065
  19. FLUOXETINE [Concomitant]
     Active Substance: FLUOXETINE HYDROCHLORIDE
     Indication: Anxiety
     Dosage: UNK UNK,UNK
     Route: 065
     Dates: start: 20170320
  20. FOLIC ACID [Concomitant]
     Active Substance: FOLIC ACID
     Indication: Prophylaxis
     Dosage: UNK UNK,UNK
     Route: 065
     Dates: start: 20161216
  21. POTASSIUM IODIDE [Concomitant]
     Active Substance: POTASSIUM IODIDE
     Indication: Prophylaxis
     Dosage: UNK UNK,UNK
     Route: 065
     Dates: start: 20161213
  22. CLONAZEPAM [Concomitant]
     Active Substance: CLONAZEPAM
     Indication: Anxiety
     Dosage: UNK UNK,UNK
     Route: 065
     Dates: start: 20170320
  23. ACETAMINOPHEN [Concomitant]
     Active Substance: ACETAMINOPHEN
     Indication: Nasopharyngitis
     Dosage: UNK UNK,UNK
     Route: 065
     Dates: start: 20170106, end: 20170121
  24. ACETAMINOPHEN [Concomitant]
     Active Substance: ACETAMINOPHEN
     Indication: Hypoglycaemia
     Dosage: UNK UNK,UNK
     Route: 065
     Dates: start: 20170306, end: 20170308
  25. ACETAMINOPHEN [Concomitant]
     Active Substance: ACETAMINOPHEN
     Indication: Back pain
     Dosage: UNK UNK,UNK
     Route: 065
     Dates: start: 20170615
  26. DOXYLAMINE SUCCINATE\PYRIDOXINE HYDROCHLORIDE [Concomitant]
     Active Substance: DOXYLAMINE SUCCINATE\PYRIDOXINE HYDROCHLORIDE
     Indication: Vomiting
     Dosage: UNK UNK, UNK
     Route: 065
     Dates: start: 20170615
  27. YODUK [Concomitant]
     Indication: Prophylaxis

REACTIONS (6)
  - Biliary colic [Recovered/Resolved]
  - Hypoglycaemia [Not Recovered/Not Resolved]
  - Hypoglycaemia [Recovered/Resolved]
  - Hypoglycaemia [Recovered/Resolved]
  - Hypoglycaemia [Recovered/Resolved]
  - Exposure during pregnancy [Unknown]

NARRATIVE: CASE EVENT DATE: 20161107
